FAERS Safety Report 19919091 (Version 1)
Quarter: 2021Q4

REPORT INFORMATION
  Report Type: Other
  Country: CA (occurrence: CA)
  Receive Date: 20211005
  Receipt Date: 20211005
  Transmission Date: 20220303
  Serious: Yes (Other)
  Sender: FDA-Public Use
  Company Number: CA-APOTEX-2021AP028607

PATIENT
  Sex: Male

DRUGS (1)
  1. CELECOXIB [Suspect]
     Active Substance: CELECOXIB
     Indication: Analgesic therapy
     Dosage: 200 MILLIGRAM, BID
     Route: 048

REACTIONS (1)
  - Haematoma [Recovered/Resolved]
